FAERS Safety Report 7937762-2 (Version None)
Quarter: 2011Q4

REPORT INFORMATION
  Report Type: 
  Country: None (occurrence: None)
  Receive Date: 20111123
  Receipt Date: 20111116
  Transmission Date: 20120403
  Serious: Yes (Other)
  Sender: FDA-Public Use
  Company Number: PHHY2011KR94393

PATIENT
  Sex: Female

DRUGS (1)
  1. ZADITEN [Suspect]
     Dosage: UNK UKN, UNK
     Route: 048

REACTIONS (1)
  - CONVULSION [None]
